FAERS Safety Report 7123304-0 (Version None)
Quarter: 2010Q4

REPORT INFORMATION
  Report Type: 
  Country: None (occurrence: None)
  Receive Date: 20101125
  Receipt Date: 20101117
  Transmission Date: 20110411
  Serious: No
  Sender: FDA-Public Use
  Company Number: US-BIOGENIDEC-2010BI040968

PATIENT
  Age: 50 Year
  Sex: Female

DRUGS (2)
  1. TYSABRI [Suspect]
     Indication: MULTIPLE SCLEROSIS
     Route: 042
     Dates: start: 20100317
  2. AVONEX [Concomitant]
     Indication: MULTIPLE SCLEROSIS
     Route: 030

REACTIONS (11)
  - ARTHRALGIA [None]
  - JOINT HYPEREXTENSION [None]
  - JOINT SWELLING [None]
  - MENISCUS LESION [None]
  - MUSCLE SPASMS [None]
  - NASOPHARYNGITIS [None]
  - PAIN IN EXTREMITY [None]
  - PNEUMONIA [None]
  - RIB FRACTURE [None]
  - URINARY INCONTINENCE [None]
  - WEIGHT DECREASED [None]
